FAERS Safety Report 6725326-8 (Version None)
Quarter: 2010Q2

REPORT INFORMATION
  Report Type: 
  Country: None (occurrence: None)
  Receive Date: 20100514
  Receipt Date: 20100511
  Transmission Date: 20101027
  Serious: Yes (Other)
  Sender: FDA-Public Use
  Company Number: US-BRISTOL-MYERS SQUIBB COMPANY-15100464

PATIENT
  Age: 38 Year
  Sex: Female
  Weight: 91 kg

DRUGS (6)
  1. ABILIFY [Suspect]
     Indication: DEPRESSION
     Route: 048
     Dates: start: 20091201
  2. ABILIFY [Suspect]
     Indication: ROAD TRAFFIC ACCIDENT
     Route: 048
     Dates: start: 20091201
  3. ABILIFY [Suspect]
     Indication: COMA
     Route: 048
     Dates: start: 20091201
  4. SERTRALINE HCL [Concomitant]
     Route: 048
  5. LORATADINE [Concomitant]
     Route: 048
     Dates: start: 20090101
  6. HYDROCHLOROTHIAZIDE [Concomitant]
     Route: 048
     Dates: start: 20090101

REACTIONS (2)
  - APHASIA [None]
  - SPEECH DISORDER [None]
